FAERS Safety Report 8960141 (Version 2)
Quarter: 2013Q1

REPORT INFORMATION
  Report Type: Spontaneous
  Country: FR (occurrence: FR)
  Receive Date: 20121212
  Receipt Date: 20130130
  Transmission Date: 20140127
  Serious: Yes (Hospitalization, Other)
  Sender: FDA-Public Use
  Company Number: PHHY2012FR112793

PATIENT
  Age: 71 Year
  Sex: Female

DRUGS (8)
  1. VOLTARENE [Suspect]
     Indication: OSTEOARTHRITIS
     Route: 048
     Dates: end: 20121029
  2. NISISCO [Interacting]
     Indication: HYPERTENSION
     Dosage: 1 DF (160 MG VALS/25 MG AMLO), UNK
     Route: 048
     Dates: end: 20121029
  3. CELEBREX [Interacting]
     Indication: OSTEOARTHRITIS
     Route: 048
     Dates: end: 20121029
  4. BIPROFENID [Interacting]
     Indication: OSTEOARTHRITIS
     Dosage: 100 MG, UNK
     Route: 048
     Dates: end: 20121029
  5. LODINE [Interacting]
     Indication: OSTEOARTHRITIS
     Route: 048
     Dates: end: 20121029
  6. TETRAZEPAM [Concomitant]
     Dosage: 1 DF, DAILY
     Route: 048
     Dates: end: 20121029
  7. FEGENOR [Concomitant]
     Indication: HYPERCHOLESTEROLAEMIA
     Dosage: 1 DF, DAILY
     Route: 048
     Dates: end: 20121029
  8. NSAID^S [Concomitant]
     Dates: start: 201209

REACTIONS (5)
  - Renal failure acute [Recovered/Resolved]
  - Weight decreased [Recovered/Resolved]
  - Asthenia [Recovered/Resolved]
  - General physical health deterioration [Unknown]
  - Drug interaction [Unknown]
